FAERS Safety Report 5334287-8 (Version None)
Quarter: 2007Q2

REPORT INFORMATION
  Report Type: 
  Country: None (occurrence: None)
  Receive Date: 20070523
  Receipt Date: 20070523
  Transmission Date: 20071010
  Serious: Yes (Disabling)
  Sender: FDA-Public Use
  Company Number: None

PATIENT
  Age: 49 Year
  Sex: Female
  Weight: 77.1115 kg

DRUGS (1)
  1. CHANTIX [Suspect]
     Indication: SMOKING CESSATION THERAPY
     Dosage: ONE PILL DAILY PO
     Route: 048
     Dates: start: 20070220, end: 20070224

REACTIONS (3)
  - DYSPNOEA [None]
  - GASTRIC DISORDER [None]
  - SWELLING [None]
